FAERS Safety Report 24327584 (Version 1)
Quarter: 2024Q3

REPORT INFORMATION
  Report Type: Spontaneous
  Country: US (occurrence: None)
  Receive Date: 20240916
  Receipt Date: 20240916
  Transmission Date: 20241016
  Serious: Yes (Death)
  Sender: Public
  Company Number: None

PATIENT
  Age: 79 Year
  Sex: Female
  Weight: 46.7 kg

DRUGS (1)
  1. TACROLIMUS [Suspect]
     Active Substance: TACROLIMUS
     Indication: Renal transplant
     Dosage: 1MG ORAL
     Route: 048
     Dates: start: 20140215, end: 20240824

REACTIONS (2)
  - Nephropathy [None]
  - Disease progression [None]

NARRATIVE: CASE EVENT DATE: 20240824
